FAERS Safety Report 21910449 (Version 2)
Quarter: 2023Q1

REPORT INFORMATION
  Report Type: Spontaneous
  Country: US (occurrence: US)
  Receive Date: 20230125
  Receipt Date: 20230322
  Transmission Date: 20230418
  Serious: No
  Sender: FDA-Public Use
  Company Number: US-ALLERGAN-2210628US

PATIENT
  Sex: Female

DRUGS (1)
  1. BOTOX COSMETIC [Suspect]
     Active Substance: ONABOTULINUMTOXINA
     Indication: Product used for unknown indication
     Dosage: UNK UNK, SINGLE

REACTIONS (3)
  - Multiple use of single-use product [Unknown]
  - Product preparation error [Unknown]
  - Drug ineffective [Unknown]
